FAERS Safety Report 7767062-5 (Version None)
Quarter: 2011Q3

REPORT INFORMATION
  Report Type: 
  Country: None (occurrence: None)
  Receive Date: 20110922
  Receipt Date: 20101103
  Transmission Date: 20111222
  Serious: Yes (Hospitalization)
  Sender: FDA-Public Use
  Company Number: US-ASTRAZENECA-2010SE52153

PATIENT
  Age: 29 Year
  Sex: Female
  Weight: 56.7 kg

DRUGS (2)
  1. SEROQUEL XR [Suspect]
     Indication: BIPOLAR DISORDER
     Route: 048
     Dates: end: 20080101
  2. LEXAPRO [Concomitant]
     Route: 065

REACTIONS (5)
  - DYSPHAGIA [None]
  - DEPRESSED MOOD [None]
  - DRUG DOSE OMISSION [None]
  - VOMITING [None]
  - MALAISE [None]
